FAERS Safety Report 24242011 (Version 2)
Quarter: 2024Q3

REPORT INFORMATION
  Report Type: Spontaneous
  Country: US (occurrence: US)
  Receive Date: 20240823
  Receipt Date: 20240902
  Transmission Date: 20241017
  Serious: No
  Sender: ABBVIE
  Company Number: US-ABBVIE-5890631

PATIENT
  Sex: Female

DRUGS (1)
  1. LINZESS [Suspect]
     Active Substance: LINACLOTIDE
     Indication: Product used for unknown indication
     Dosage: FORM STRENGTH: 72 MICROGRAM
     Route: 048

REACTIONS (1)
  - Product dispensing error [Recovered/Resolved]

NARRATIVE: CASE EVENT DATE: 20240826
